FAERS Safety Report 15536310 (Version 1)
Quarter: 2018Q4

REPORT INFORMATION
  Report Type: Spontaneous
  Country: US (occurrence: US)
  Receive Date: 20181022
  Receipt Date: 20181022
  Transmission Date: 20190205
  Serious: No
  Sender: FDA-Public Use
  Company Number: US-AMGEN-USASP2018145219

PATIENT
  Age: 69 Year
  Sex: Female

DRUGS (9)
  1. CALCIUM W/VITAMIN D [Concomitant]
     Active Substance: CALCIUM\VITAMIN D
     Dosage: UNK
  2. FISH OIL [Concomitant]
     Active Substance: FISH OIL
     Dosage: 1 DF, QD
  3. TURMERIC [Concomitant]
     Active Substance: HERBALS\TURMERIC
     Indication: ARTHRITIS
  4. AZECOL [Concomitant]
     Indication: COLITIS
     Dosage: UNK
  5. FAMOTIDINE. [Concomitant]
     Active Substance: FAMOTIDINE
     Indication: DYSPEPSIA
     Dosage: UNK
  6. ALEVE [Concomitant]
     Active Substance: NAPROXEN SODIUM
     Dosage: UNK
  7. PROLIA [Suspect]
     Active Substance: DENOSUMAB
     Indication: OSTEOPOROSIS POSTMENOPAUSAL
     Dosage: UNK
     Route: 065
     Dates: start: 2016
  8. VITAMIN C [Concomitant]
     Active Substance: ASCORBIC ACID
     Dosage: UNK
  9. TURMERIC [Concomitant]
     Active Substance: HERBALS\TURMERIC
     Indication: MUSCLE DISORDER
     Dosage: UNK

REACTIONS (4)
  - Bone loss [Not Recovered/Not Resolved]
  - Procedural complication [Unknown]
  - Ligament sprain [Not Recovered/Not Resolved]
  - Arthralgia [Unknown]

NARRATIVE: CASE EVENT DATE: 201810
